FAERS Safety Report 7792759-0 (Version None)
Quarter: 2011Q3

REPORT INFORMATION
  Report Type: 
  Country: None (occurrence: None)
  Receive Date: 20110929
  Receipt Date: 20110922
  Transmission Date: 20111222
  Serious: Yes (Hospitalization)
  Sender: FDA-Public Use
  Company Number: 2011-IL-0006

PATIENT
  Age: 35 Year
  Sex: Male

DRUGS (2)
  1. METOCLOPRAMIDE HCL (METOCLOPRAMIDE HYDROCHLORIDE) [Concomitant]
  2. NITROGLYCERIN [Suspect]
     Indication: ANAL FISSURE
     Dosage: 5 CM TOPICAL
     Route: 061
     Dates: start: 20110915, end: 20110917

REACTIONS (5)
  - CONSTIPATION [None]
  - HEADACHE [None]
  - CHEST DISCOMFORT [None]
  - BLOOD PRESSURE INCREASED [None]
  - VOMITING [None]
